FAERS Safety Report 5355227-1 (Version None)
Quarter: 2007Q2

REPORT INFORMATION
  Report Type: 
  Country: None (occurrence: None)
  Receive Date: 20070613
  Receipt Date: 20070607
  Transmission Date: 20071010
  Serious: Yes (Life-Threatening)
  Sender: FDA-Public Use
  Company Number: JP-BRACCO-BRO-011617

PATIENT
  Age: 4 Year
  Sex: Male
  Weight: 17.6 kg

DRUGS (2)
  1. IOPAMIRON [Suspect]
     Dosage: 0.4 ML/SEC
     Route: 042
     Dates: start: 20070326, end: 20070326
  2. IOPAMIRON [Suspect]
     Indication: COMPUTERISED TOMOGRAM
     Dosage: 0.4 ML/SEC
     Route: 042
     Dates: start: 20070326, end: 20070326

REACTIONS (2)
  - COOMBS POSITIVE HAEMOLYTIC ANAEMIA [None]
  - HAEMOGLOBINURIA [None]
